FAERS Safety Report 15615611 (Version 3)
Quarter: 2019Q2

REPORT INFORMATION
  Report Type: Report from Study
  Country: US (occurrence: US)
  Receive Date: 20181114
  Receipt Date: 20190506
  Transmission Date: 20190711
  Serious: Yes (Hospitalization, Other)
  Sender: FDA-Public Use
  Company Number: US-ROCHE-2209923

PATIENT
  Sex: Male
  Weight: 79.45 kg

DRUGS (6)
  1. LEVOFLOXACIN. [Concomitant]
     Active Substance: LEVOFLOXACIN
  2. AMLODIPINE BESILATE [Concomitant]
     Active Substance: AMLODIPINE BESYLATE
     Route: 065
  3. BENADRYL [Suspect]
     Active Substance: DIPHENHYDRAMINE HYDROCHLORIDE
     Indication: PREMEDICATION
     Route: 065
     Dates: start: 20181026
  4. AMPYRA [Concomitant]
     Active Substance: DALFAMPRIDINE
     Route: 048
     Dates: start: 20150526
  5. OCREVUS [Suspect]
     Active Substance: OCRELIZUMAB
     Indication: PRIMARY PROGRESSIVE MULTIPLE SCLEROSIS
     Dosage: FIRST HALF OF THE FIRST HALF
     Route: 065
     Dates: start: 20181026
  6. METRONIDAZOLE. [Concomitant]
     Active Substance: METRONIDAZOLE

REACTIONS (10)
  - Urinary incontinence [Not Recovered/Not Resolved]
  - Fear [Unknown]
  - Urinary tract disorder [Recovered/Resolved]
  - Abdominal distension [Not Recovered/Not Resolved]
  - Dysuria [Unknown]
  - Gastrointestinal disorder [Recovered/Resolved]
  - Pruritus [Unknown]
  - Gait disturbance [Unknown]
  - Dyschezia [Unknown]
  - Muscle spasms [Not Recovered/Not Resolved]
